FAERS Safety Report 7486215-7 (Version None)
Quarter: 2011Q2

REPORT INFORMATION
  Report Type: 
  Country: None (occurrence: None)
  Receive Date: 20110517
  Receipt Date: 20110120
  Transmission Date: 20111010
  Serious: Yes (Other)
  Sender: FDA-Public Use
  Company Number: A0909185A

PATIENT
  Age: 62 Year
  Sex: Male
  Weight: 69 kg

DRUGS (11)
  1. INOSITOL [Concomitant]
  2. MULTI-VITAMIN [Concomitant]
  3. CHOLINE BITARTRATE [Concomitant]
  4. PANTOTHENIC ACID [Concomitant]
  5. BIOTIN [Concomitant]
  6. VOTRIENT [Suspect]
     Dosage: 4TAB AT NIGHT
     Route: 048
  7. CALCIUM + MAGNESIUM [Concomitant]
  8. VITAMIN E [Concomitant]
  9. VITAMIN B COMPLEX CAP [Concomitant]
  10. LECITHIN [Concomitant]
  11. VITAMIN A [Concomitant]

REACTIONS (2)
  - HEPATIC ENZYME INCREASED [None]
  - DIARRHOEA [None]
